FAERS Safety Report 4505181-7 (Version None)
Quarter: 2004Q4

REPORT INFORMATION
  Report Type: 
  Country: None (occurrence: None)
  Receive Date: 20041119
  Receipt Date: 20041105
  Transmission Date: 20050328
  Serious: Yes (Other)
  Sender: FDA-Public Use
  Company Number: PHEH2004US11953

PATIENT
  Age: 21 Year
  Sex: Female
  Weight: 51 kg

DRUGS (4)
  1. ZELNORM [Suspect]
     Indication: IRRITABLE BOWEL SYNDROME
     Dosage: 6 MG, BID
     Route: 048
     Dates: start: 20041028, end: 20041106
  2. CONCERTA [Concomitant]
  3. PROZAC [Concomitant]
     Dosage: 20 MG, QD
     Route: 048
  4. DOFAMIUM CHLORIDE [Concomitant]

REACTIONS (5)
  - DIARRHOEA [None]
  - HAEMATOCHEZIA [None]
  - HAEMORRHOIDAL HAEMORRHAGE [None]
  - HEADACHE [None]
  - RECTAL HAEMORRHAGE [None]
